FAERS Safety Report 7664921-9 (Version None)
Quarter: 2011Q3

REPORT INFORMATION
  Report Type: 
  Country: None (occurrence: None)
  Receive Date: 20110806
  Receipt Date: 20110307
  Transmission Date: 20111222
  Serious: No
  Sender: FDA-Public Use
  Company Number: US-ABBOTT-10P-163-0647377-00

PATIENT
  Sex: Male
  Weight: 79.45 kg

DRUGS (9)
  1. EXCEDERIN [Concomitant]
     Indication: HEADACHE
  2. NAPROXEN [Concomitant]
     Indication: HEADACHE
  3. NIASPAN [Suspect]
     Indication: BLOOD CHOLESTEROL INCREASED
     Route: 048
     Dates: start: 20100516, end: 20100701
  4. NIASPAN [Suspect]
     Route: 048
     Dates: start: 20100701, end: 20100901
  5. MULTI-VITAMIN [Concomitant]
     Indication: VITAMIN SUPPLEMENTATION
  6. ADVIL LIQUI-GELS [Concomitant]
     Indication: HEADACHE
  7. NIASPAN [Suspect]
     Route: 048
     Dates: start: 20100901
  8. SUMATRIPTAN SUCCINATE [Concomitant]
     Indication: MIGRAINE
  9. SUMATRIPTAN SUCCINATE [Concomitant]
     Indication: HEADACHE
     Dosage: 100 MG AS NEEDED
     Dates: start: 20090101

REACTIONS (1)
  - HEADACHE [None]
